FAERS Safety Report 5814935-6 (Version None)
Quarter: 2008Q3

REPORT INFORMATION
  Report Type: 
  Country: None (occurrence: None)
  Receive Date: 20080718
  Receipt Date: 20080708
  Transmission Date: 20090109
  Serious: Yes (Hospitalization)
  Sender: FDA-Public Use
  Company Number: PHBS2008US05052

PATIENT
  Age: 34 Year
  Sex: Male

DRUGS (7)
  1. CYCLOSPORINE [Suspect]
     Indication: RENAL TRANSPLANT
     Dosage: UNK
     Dates: start: 20030101
  2. PREDNISONE TAB [Suspect]
     Indication: RENAL TRANSPLANT
     Dosage: UNK
     Dates: start: 20030101
  3. MYCOPHENOLATE MOFETIL [Suspect]
     Indication: RENAL TRANSPLANT
     Dosage: UNK
     Dates: start: 20030101, end: 20060101
  4. CYSTEAMINE [Concomitant]
  5. DARBEPOETIN ALFA [Concomitant]
  6. FOLATE SODIUM [Concomitant]
  7. VITAMIN B-12 [Concomitant]

REACTIONS (7)
  - BONE MARROW DISORDER [None]
  - CYSTINOSIS [None]
  - KIDNEY FIBROSIS [None]
  - KIDNEY TRANSPLANT REJECTION [None]
  - PANCYTOPENIA [None]
  - RENAL IMPAIRMENT [None]
  - RENAL TUBULAR ATROPHY [None]
